FAERS Safety Report 20392448 (Version 1)
Quarter: 2022Q1

REPORT INFORMATION
  Report Type: Spontaneous
  Country: US (occurrence: US)
  Receive Date: 20220128
  Receipt Date: 20220128
  Transmission Date: 20220423
  Serious: No
  Sender: FDA-Public Use
  Company Number: US-GW PHARMA-202201USGW00379

PATIENT
  Sex: Male
  Weight: 12.812 kg

DRUGS (1)
  1. EPIDIOLEX [Suspect]
     Active Substance: CANNABIDIOL
     Indication: Product used for unknown indication
     Dosage: 400 MILLIGRAM, FREQUENCY NOT REPORTED
     Route: 048
     Dates: start: 20210721

REACTIONS (1)
  - Weight increased [Unknown]
